FAERS Safety Report 16804351 (Version 1)
Quarter: 2019Q3

REPORT INFORMATION
  Report Type: Spontaneous
  Country: US (occurrence: US)
  Receive Date: 20190723
  Receipt Date: 20190723
  Transmission Date: 20191005
  Serious: Yes (Hospitalization)
  Sender: FDA-Public Use
  Company Number: None

PATIENT
  Age: 83 Year
  Sex: Male

DRUGS (1)
  1. HYDROCHLOROTHIAZIDE. [Suspect]
     Active Substance: HYDROCHLOROTHIAZIDE
     Indication: HYPERTENSION
     Dosage: ?          OTHER FREQUENCY:AM;?
     Route: 048
     Dates: start: 20180625, end: 20190612

REACTIONS (4)
  - Dizziness [None]
  - Hyponatraemia [None]
  - Asthenia [None]
  - Diarrhoea [None]

NARRATIVE: CASE EVENT DATE: 20190612
